FAERS Safety Report 8197617-8 (Version None)
Quarter: 2012Q1

REPORT INFORMATION
  Report Type: 
  Country: None (occurrence: None)
  Receive Date: 20120309
  Receipt Date: 20120302
  Transmission Date: 20120608
  Serious: Yes (Hospitalization)
  Sender: FDA-Public Use
  Company Number: US-ABBOTT-12P-163-0910814-00

PATIENT
  Sex: Male

DRUGS (1)
  1. HUMIRA [Suspect]
     Indication: COLITIS ULCERATIVE
     Dates: start: 20111118, end: 20120201

REACTIONS (12)
  - HEADACHE [None]
  - DIARRHOEA [None]
  - DRUG INEFFECTIVE [None]
  - CHILLS [None]
  - OROPHARYNGEAL PAIN [None]
  - PAIN [None]
  - COLITIS ULCERATIVE [None]
  - OFF LABEL USE [None]
  - NASOPHARYNGITIS [None]
  - NASAL CONGESTION [None]
  - RHINORRHOEA [None]
  - COUGH [None]
